FAERS Safety Report 8128670-5 (Version None)
Quarter: 2012Q1

REPORT INFORMATION
  Report Type: 
  Country: None (occurrence: None)
  Receive Date: 20120210
  Receipt Date: 20110131
  Transmission Date: 20120608
  Serious: No
  Sender: FDA-Public Use
  Company Number: US-BRISTOL-MYERS SQUIBB COMPANY-14718258

PATIENT
  Age: 62 Year
  Sex: Female
  Weight: 50 kg

DRUGS (4)
  1. HORMONES [Concomitant]
     Dosage: HORMONE PATCH,HARMONE PILLS
  2. NAPROXEN (ALEVE) [Concomitant]
  3. MULTI-VITAMINS [Concomitant]
  4. ORENCIA [Suspect]
     Indication: RHEUMATOID ARTHRITIS
     Dates: start: 20090401

REACTIONS (2)
  - BLISTER [None]
  - RASH MACULAR [None]
